FAERS Safety Report 15678050 (Version 2)
Quarter: 2019Q1

REPORT INFORMATION
  Report Type: Report from Study
  Country: None (occurrence: CH)
  Receive Date: 20181201
  Receipt Date: 20190218
  Transmission Date: 20190417
  Serious: Yes (Hospitalization, Other)
  Sender: FDA-Public Use
  Company Number: CH-ABBVIE-18S-151-2545337-00

PATIENT
  Age: 54 Year
  Sex: Female

DRUGS (8)
  1. DUODOPA [Suspect]
     Active Substance: CARBIDOPA\LEVODOPA
     Dosage: MD 3ML; CRD  3.4ML/H; CRN 1.9ML/H; ED 1.4ML 24H THERAPY
     Route: 050
     Dates: start: 20180320, end: 20180527
  2. DUODOPA [Suspect]
     Active Substance: CARBIDOPA\LEVODOPA
     Dosage: MD: 3 ML, CD: 3.1 ML/H, CRN: 1.4 ML/H, ED: 0.8 ML, 24 H THERAPY
     Route: 050
     Dates: start: 20190212
  3. DUODOPA [Suspect]
     Active Substance: CARBIDOPA\LEVODOPA
     Dosage: MD 6ML; CRD 3.3ML/H; CRN 1.9ML/H; ED 1.5ML 24H THERAPY
     Route: 050
     Dates: start: 20180527
  4. DUODOPA [Suspect]
     Active Substance: CARBIDOPA\LEVODOPA
     Dosage: MD: 3 ML, CRD: 3 ML/H, CRN: 1.4 ML/H,ED: 0.8 ML, 24 H THERAPY
     Route: 050
     Dates: start: 201902, end: 20190212
  5. DUODOPA [Suspect]
     Active Substance: CARBIDOPA\LEVODOPA
     Indication: PARKINSON^S DISEASE
     Route: 050
     Dates: start: 20170321, end: 20180320
  6. TEMESTA [LORAZEPAM] [Suspect]
     Active Substance: LORAZEPAM
     Indication: PRODUCT USED FOR UNKNOWN INDICATION
     Route: 065
  7. COMTESS [Concomitant]
     Active Substance: ENTACAPONE
     Indication: PRODUCT USED FOR UNKNOWN INDICATION
     Dosage: DOSE INCREASED
  8. DUODOPA [Suspect]
     Active Substance: CARBIDOPA\LEVODOPA
     Dosage: MD: 3 ML,CRD: 3 ML/H, CRN: 1.4 ML/H,ED: 1 ML, 24 H THERAPY
     Route: 050
     Dates: start: 20190207, end: 201902

REACTIONS (19)
  - Tremor [Not Recovered/Not Resolved]
  - Fear [Unknown]
  - Aggression [Unknown]
  - Somatic symptom disorder [Unknown]
  - Cataract [Unknown]
  - Dysphagia [Unknown]
  - Device difficult to use [Unknown]
  - Dependence [Unknown]
  - Fatigue [Unknown]
  - Stoma site discharge [Unknown]
  - Hyperkinesia [Unknown]
  - Stoma site induration [Unknown]
  - Suicidal ideation [Recovering/Resolving]
  - Feeling abnormal [Unknown]
  - Stoma site pain [Unknown]
  - Stress [Unknown]
  - Weight decreased [Unknown]
  - Overdose [Unknown]
  - Intentional product use issue [Unknown]

NARRATIVE: CASE EVENT DATE: 2018
